FAERS Safety Report 13669272 (Version 2)
Quarter: 2017Q3

REPORT INFORMATION
  Report Type: Spontaneous
  Country: US (occurrence: US)
  Receive Date: 20170620
  Receipt Date: 20170711
  Transmission Date: 20171127
  Serious: Yes (Other)
  Sender: FDA-Public Use
  Company Number: US-AKORN PHARMACEUTICALS-2017AKN00790

PATIENT
  Sex: Male
  Weight: 56 kg

DRUGS (1)
  1. MYORISAN [Suspect]
     Active Substance: ISOTRETINOIN
     Indication: ACNE
     Dosage: 40 MG, 1X/DAY
     Route: 048
     Dates: start: 20170427, end: 201705

REACTIONS (3)
  - Asthenia [Recovered/Resolved]
  - Mood altered [Recovered/Resolved]
  - Decreased interest [Recovered/Resolved]

NARRATIVE: CASE EVENT DATE: 2017
